FAERS Safety Report 20376489 (Version 2)
Quarter: 2022Q1

REPORT INFORMATION
  Report Type: Spontaneous
  Country: TW (occurrence: TW)
  Receive Date: 20220125
  Receipt Date: 20220207
  Transmission Date: 20220424
  Serious: Yes (Hospitalization, Other)
  Sender: FDA-Public Use
  Company Number: TW-PFIZER INC-202200066485

PATIENT
  Sex: Female

DRUGS (1)
  1. XELJANZ XR [Suspect]
     Active Substance: TOFACITINIB CITRATE
     Indication: Rheumatoid arthritis
     Dosage: 11 MG, 1X/DAY
     Route: 048
     Dates: start: 202108

REACTIONS (4)
  - Cerebrovascular disorder [Recovering/Resolving]
  - Hypertension [Not Recovered/Not Resolved]
  - Disease recurrence [Not Recovered/Not Resolved]
  - Poor quality sleep [Not Recovered/Not Resolved]
